FAERS Safety Report 9286461 (Version 1)
Quarter: 2013Q2

REPORT INFORMATION
  Report Type: Spontaneous
  Country: US (occurrence: US)
  Receive Date: 20130513
  Receipt Date: 20130513
  Transmission Date: 20140414
  Serious: Yes (Hospitalization)
  Sender: FDA-Public Use
  Company Number: US-BAYER-2013-056484

PATIENT
  Age: 49 Year
  Sex: Male
  Weight: 94.33 kg

DRUGS (4)
  1. BETASERON [Suspect]
     Dosage: 0.25 MG, QOD
     Route: 058
  2. WELLBUTRIN [Concomitant]
     Dosage: 100 MG, UNK
  3. VITAMIN D [Concomitant]
     Dosage: 400 U, UNK
  4. ALLEGRA [Concomitant]
     Dosage: 30 MG, UNK

REACTIONS (2)
  - Hypersensitivity [Unknown]
  - Generalised erythema [Unknown]
